FAERS Safety Report 10175874 (Version 3)
Quarter: 2016Q1

REPORT INFORMATION
  Report Type: Spontaneous
  Country: BR (occurrence: BR)
  Receive Date: 20140516
  Receipt Date: 20160206
  Transmission Date: 20160525
  Serious: Yes (Other)
  Sender: FDA-Public Use
  Company Number: BR-AMGEN INC.-BRASP2014017827

PATIENT
  Age: 49 Year
  Sex: Female
  Weight: 69 kg

DRUGS (8)
  1. PREDSIM [Concomitant]
     Active Substance: PREDNISOLONE
     Indication: ASTHMA
     Dosage: UNK, STRENGTH 20MG
  2. ALPRAZOLAM. [Concomitant]
     Active Substance: ALPRAZOLAM
     Indication: ANXIETY
     Dosage: UNK, STRENGTH 0.5
  3. FLUOXETINE [Concomitant]
     Active Substance: FLUOXETINE HYDROCHLORIDE
     Indication: ANXIETY
     Dosage: 1 DF, EVERY 12 HOURS (CYCLIC)
  4. CLINFAR [Concomitant]
     Active Substance: SIMVASTATIN
     Indication: BLOOD CHOLESTEROL INCREASED
     Dosage: 20 MG, 1X/DAY
  5. ALENIA                             /01538101/ [Concomitant]
     Active Substance: BUDESONIDE\FORMOTEROL FUMARATE
     Indication: ASTHMA
     Dosage: UNK, STRENGTH 12MG
     Dates: start: 2006
  6. ALENIA [Concomitant]
     Active Substance: BUDESONIDE\FORMOTEROL FUMARATE
     Indication: ASTHMA
     Dosage: UNK, STRENGTH 12MG
     Dates: start: 2006
  7. ENBREL [Suspect]
     Active Substance: ETANERCEPT
     Indication: PSORIATIC ARTHROPATHY
     Dosage: 50 MG, ONCE WEEKLY (ON FRIDAYS)
     Route: 058
     Dates: start: 20140219, end: 201509
  8. FLUOXETINE [Concomitant]
     Active Substance: FLUOXETINE HYDROCHLORIDE
     Dosage: 20 MG, 2X/DAY (EVERY 12 HOURS)

REACTIONS (12)
  - Dizziness [Recovered/Resolved]
  - Nausea [Unknown]
  - Injection site warmth [Recovering/Resolving]
  - Injection site recall reaction [Not Recovered/Not Resolved]
  - Cyst [Unknown]
  - Injection site erythema [Unknown]
  - Injection site pain [Unknown]
  - Injection site swelling [Unknown]
  - Fear [Not Recovered/Not Resolved]
  - Injection site mass [Unknown]
  - Injection site hypersensitivity [Unknown]
  - Injection site pruritus [Unknown]

NARRATIVE: CASE EVENT DATE: 2014
